FAERS Safety Report 10666690 (Version 1)
Quarter: 2014Q4

REPORT INFORMATION
  Report Type: Spontaneous
  Country: GB (occurrence: GB)
  Receive Date: 20141222
  Receipt Date: 20141222
  Transmission Date: 20150529
  Serious: Yes (Other)
  Sender: FDA-Public Use
  Company Number: GB-AMGEN-GBRSP2014098906

PATIENT
  Age: 51 Year
  Sex: Female

DRUGS (3)
  1. PREDNISOLONE. [Concomitant]
     Active Substance: PREDNISOLONE
     Indication: ARTHRITIS
     Dosage: VARIABLE DOSAGE. LONGSTANDING
     Route: 048
  2. AZATHIOPRINE. [Concomitant]
     Active Substance: AZATHIOPRINE
     Indication: ARTHRITIS
     Dosage: LONGSTANDING
     Route: 048
     Dates: end: 201411
  3. ENBREL [Suspect]
     Active Substance: ETANERCEPT
     Indication: PRODUCT USED FOR UNKNOWN INDICATION
     Dosage: 50 MG, WEEKLY
     Route: 058
     Dates: start: 201401, end: 201411

REACTIONS (4)
  - Malaise [Unknown]
  - Tuberculosis [Not Recovered/Not Resolved]
  - Pyrexia [Unknown]
  - Lymphadenopathy [Not Recovered/Not Resolved]

NARRATIVE: CASE EVENT DATE: 201411
